FAERS Safety Report 8521337-0 (Version None)
Quarter: 2012Q3

REPORT INFORMATION
  Report Type: 
  Country: None (occurrence: None)
  Receive Date: 20120717
  Receipt Date: 20120711
  Transmission Date: 20120928
  Serious: Yes (Other)
  Sender: FDA-Public Use
  Company Number: US-TYCO HEALTHCARE/MALLINCKRODT-T201101307

PATIENT
  Sex: Female
  Weight: 90.703 kg

DRUGS (3)
  1. OPTIRAY 160 [Suspect]
     Indication: COMPUTERISED TOMOGRAM
     Dosage: 100 ML, SINGLE
     Route: 042
     Dates: start: 20110630, end: 20110630
  2. PRENATAL VITAMINS                  /01549301/ [Concomitant]
     Dosage: UNK
  3. BIRTH CONTROL PILLS [Concomitant]
     Dosage: UNK

REACTIONS (1)
  - HYPERSENSITIVITY [None]
